FAERS Safety Report 4263485-X (Version None)
Quarter: 2004Q1

REPORT INFORMATION
  Report Type: 
  Country: None (occurrence: None)
  Receive Date: 20040105
  Receipt Date: 20031229
  Transmission Date: 20041129
  Serious: Yes (Disabling, Other)
  Sender: FDA-Public Use
  Company Number: US-BRISTOL-MYERS SQUIBB COMPANY-12466496

PATIENT
  Sex: Male

DRUGS (1)
  1. TEQUIN [Suspect]
     Dates: start: 20010731, end: 20010801

REACTIONS (2)
  - DISABILITY [None]
  - PAIN [None]
